FAERS Safety Report 9618672 (Version 4)
Quarter: 2014Q2

REPORT INFORMATION
  Report Type: Spontaneous
  Country: US (occurrence: US)
  Receive Date: 20131014
  Receipt Date: 20140410
  Transmission Date: 20141212
  Serious: No
  Sender: FDA-Public Use
  Company Number: US-VERTEX PHARMACEUTICALS INC-2013-010213

PATIENT
  Age: 52 Year
  Sex: Female
  Weight: 91.16 kg

DRUGS (5)
  1. INCIVEK [Suspect]
     Indication: HEPATITIS C
     Dosage: 750 MG, TID
     Dates: start: 20131003, end: 20131231
  2. RIBAVIRIN [Suspect]
     Indication: HEPATITIS C
     Dosage: 3 DF AM, 2 DF PM
     Dates: start: 20131003, end: 2013
  3. RIBAVIRIN [Suspect]
     Dosage: 2 DF AM, 1 DF PM
     Dates: start: 2013
  4. PEGASYS [Suspect]
     Indication: HEPATITIS C
     Dosage: 180 ?G, QW
     Route: 058
     Dates: start: 20131009, end: 2013
  5. PEGASYS [Suspect]
     Dosage: 135 ?G, UNK
     Route: 058
     Dates: start: 2013

REACTIONS (6)
  - Blood count abnormal [Not Recovered/Not Resolved]
  - Viral test positive [Not Recovered/Not Resolved]
  - Blood potassium decreased [Recovered/Resolved]
  - Rash [Recovered/Resolved]
  - Haematochezia [Recovered/Resolved]
  - Haemorrhoids [Not Recovered/Not Resolved]
